FAERS Safety Report 24031415 (Version 1)
Quarter: 2024Q2

REPORT INFORMATION
  Report Type: Spontaneous
  Country: US (occurrence: US)
  Receive Date: 20240629
  Receipt Date: 20240629
  Transmission Date: 20240716
  Serious: Yes (Death, Life-Threatening, Hospitalization, Other)
  Sender: FDA-Public Use
  Company Number: US-MLMSERVICE-20240401-PI003437-00128-1

PATIENT

DRUGS (25)
  1. CYCLOPHOSPHAMIDE [Suspect]
     Active Substance: CYCLOPHOSPHAMIDE
     Indication: Non-Hodgkin^s lymphoma metastatic
     Dosage: UNK
     Route: 065
  2. CYCLOPHOSPHAMIDE [Suspect]
     Active Substance: CYCLOPHOSPHAMIDE
     Indication: Metastases to chest wall
  3. CYCLOPHOSPHAMIDE [Suspect]
     Active Substance: CYCLOPHOSPHAMIDE
     Indication: Metastases to skin
  4. CYCLOPHOSPHAMIDE [Suspect]
     Active Substance: CYCLOPHOSPHAMIDE
     Indication: Diffuse large B-cell lymphoma
  5. CYCLOPHOSPHAMIDE [Suspect]
     Active Substance: CYCLOPHOSPHAMIDE
     Indication: Metastases to peritoneum
  6. PREDNISONE [Suspect]
     Active Substance: PREDNISONE
     Indication: Non-Hodgkin^s lymphoma metastatic
     Dosage: UNK
     Route: 065
  7. PREDNISONE [Suspect]
     Active Substance: PREDNISONE
     Indication: Metastases to skin
  8. PREDNISONE [Suspect]
     Active Substance: PREDNISONE
     Indication: Metastases to chest wall
  9. PREDNISONE [Suspect]
     Active Substance: PREDNISONE
     Indication: Metastases to peritoneum
  10. PREDNISONE [Suspect]
     Active Substance: PREDNISONE
     Indication: Diffuse large B-cell lymphoma
  11. DOXORUBICIN [Suspect]
     Active Substance: DOXORUBICIN
     Indication: Metastases to chest wall
     Dosage: UNK
     Route: 065
  12. DOXORUBICIN [Suspect]
     Active Substance: DOXORUBICIN
     Indication: Diffuse large B-cell lymphoma
  13. DOXORUBICIN [Suspect]
     Active Substance: DOXORUBICIN
     Indication: Metastases to peritoneum
  14. DOXORUBICIN [Suspect]
     Active Substance: DOXORUBICIN
     Indication: Metastases to skin
  15. DOXORUBICIN [Suspect]
     Active Substance: DOXORUBICIN
     Indication: Non-Hodgkin^s lymphoma metastatic
  16. VINCRISTINE [Suspect]
     Active Substance: VINCRISTINE
     Indication: Non-Hodgkin^s lymphoma metastatic
     Dosage: UNK
     Route: 065
  17. VINCRISTINE [Suspect]
     Active Substance: VINCRISTINE
     Indication: Metastases to skin
  18. VINCRISTINE [Suspect]
     Active Substance: VINCRISTINE
     Indication: Diffuse large B-cell lymphoma
  19. VINCRISTINE [Suspect]
     Active Substance: VINCRISTINE
     Indication: Metastases to chest wall
  20. VINCRISTINE [Suspect]
     Active Substance: VINCRISTINE
     Indication: Metastases to peritoneum
  21. RITUXIMAB [Suspect]
     Active Substance: RITUXIMAB
     Indication: Non-Hodgkin^s lymphoma metastatic
     Dosage: UNK
     Route: 065
  22. RITUXIMAB [Suspect]
     Active Substance: RITUXIMAB
     Indication: Metastases to chest wall
  23. RITUXIMAB [Suspect]
     Active Substance: RITUXIMAB
     Indication: Diffuse large B-cell lymphoma
  24. RITUXIMAB [Suspect]
     Active Substance: RITUXIMAB
     Indication: Metastases to peritoneum
  25. RITUXIMAB [Suspect]
     Active Substance: RITUXIMAB
     Indication: Metastases to skin

REACTIONS (3)
  - Immunosuppression [Fatal]
  - Neutropenia [Fatal]
  - Klebsiella sepsis [Fatal]
